FAERS Safety Report 6874568-X (Version None)
Quarter: 2010Q2

REPORT INFORMATION
  Report Type: 
  Country: None (occurrence: None)
  Receive Date: 20100609
  Receipt Date: 20090714
  Transmission Date: 20101027
  Serious: No
  Sender: FDA-Public Use
  Company Number: 2009-00427

PATIENT
  Age: 53 Year
  Sex: Female
  Weight: 74.8435 kg

DRUGS (2)
  1. ZICAM COLD REMEDY GEL SWABS [Suspect]
     Dosage: QD - ONE DOSE; LATE SPRING 2009 - 1 DOSE
     Dates: end: 20090101
  2. ALBUTEROL [Concomitant]

REACTIONS (2)
  - ANOSMIA [None]
  - SWELLING FACE [None]
